FAERS Safety Report 19865149 (Version 1)
Quarter: 2021Q3

REPORT INFORMATION
  Report Type: Spontaneous
  Country: US (occurrence: US)
  Receive Date: 20210921
  Receipt Date: 20210921
  Transmission Date: 20211014
  Serious: No
  Sender: FDA-Public Use
  Company Number: None

PATIENT
  Sex: Male

DRUGS (2)
  1. HYCAMTIN [Suspect]
     Active Substance: TOPOTECAN HYDROCHLORIDE
     Dosage: ?          OTHER FREQUENCY:QD 1?4/21DAYS;?
     Route: 048
  2. HYCAMTIN [Suspect]
     Active Substance: TOPOTECAN HYDROCHLORIDE
     Dosage: ?          OTHER FREQUENCY:QD 1?4/21DAYS;?
     Route: 048

REACTIONS (2)
  - Haemoglobin decreased [None]
  - White blood cell count decreased [None]
